FAERS Safety Report 7490527-0 (Version None)
Quarter: 2011Q2

REPORT INFORMATION
  Report Type: 
  Country: None (occurrence: None)
  Receive Date: 20110512
  Receipt Date: 20110427
  Transmission Date: 20111010
  Serious: Yes (Other)
  Sender: FDA-Public Use
  Company Number: AUR-APL-2011-01105

PATIENT
  Age: 41 Year
  Sex: Male
  Weight: 94.1 kg

DRUGS (9)
  1. OMEPRAZOLE [Concomitant]
  2. ROSUVASTATIN [Concomitant]
  3. FLUTICASONE PROPIONATE [Concomitant]
  4. BUDESONIDE [Concomitant]
  5. LEVOTHYROXINE SODIUM [Concomitant]
  6. PF-02341066 [Suspect]
     Indication: NON-SMALL CELL LUNG CANCER
     Dosage: 250MG-BID-ORAL
     Route: 048
     Dates: start: 20110204
  7. ZYRTEC-D 12 HOUR [Concomitant]
  8. BENAZEPRIL HYDROCHLORIDE [Suspect]
     Indication: HYPERTENSION
     Dosage: 20MG-DAILY
     Dates: start: 20070122
  9. NIACIN [Concomitant]

REACTIONS (8)
  - HYPOTENSION [None]
  - RHINITIS ALLERGIC [None]
  - OPTIC NERVE DISORDER [None]
  - GASTROOESOPHAGEAL REFLUX DISEASE [None]
  - OPTIC ATROPHY [None]
  - VISUAL FIELD DEFECT [None]
  - METAMORPHOPSIA [None]
  - NON-SMALL CELL LUNG CANCER METASTATIC [None]
